FAERS Safety Report 9247427 (Version 1)
Quarter: 2013Q2

REPORT INFORMATION
  Report Type: Spontaneous
  Country: US (occurrence: US)
  Receive Date: 20130423
  Receipt Date: 20130423
  Transmission Date: 20140414
  Serious: Yes (Hospitalization, Other)
  Sender: FDA-Public Use
  Company Number: US-SANOFI-AVENTIS-2013SA041135

PATIENT
  Age: 53 Year
  Sex: Male

DRUGS (2)
  1. LANTUS [Suspect]
     Indication: TYPE 2 DIABETES MELLITUS
     Dosage: 70 UNITS AM AND 75 UNITS PM?THERAPY START DATE - 20 YEARS
     Route: 051
  2. HUMALOG [Concomitant]

REACTIONS (3)
  - Diabetic neuropathy [Unknown]
  - Sensory loss [Unknown]
  - Localised infection [Unknown]
